FAERS Safety Report 7221065-8 (Version None)
Quarter: 2011Q1

REPORT INFORMATION
  Report Type: 
  Country: None (occurrence: None)
  Receive Date: 20110112
  Receipt Date: 20110110
  Transmission Date: 20110831
  Serious: Yes (Other)
  Sender: FDA-Public Use
  Company Number: US-PFIZER INC-2010103920

PATIENT
  Sex: Female
  Weight: 51.247 kg

DRUGS (7)
  1. PRISTIQ [Suspect]
     Indication: CONFUSIONAL STATE
     Dosage: 50 MG, 1X/DAY
     Dates: start: 20100730
  2. LEXAPRO [Concomitant]
  3. COZAAR [Concomitant]
     Indication: HYPERTENSION
     Dosage: 100 MG, DAILY
     Route: 048
  4. EXELON [Concomitant]
     Indication: MEMORY IMPAIRMENT
     Dosage: UNK
  5. DOXAZOSIN MESILATE [Suspect]
     Indication: HYPERTENSION
     Dosage: UNK
     Dates: end: 20100101
  6. OXYBUTYNIN [Concomitant]
     Indication: BLADDER DISORDER
     Dosage: UNK
  7. LEXAPRO [Concomitant]
     Indication: ANXIETY
     Dosage: UNK

REACTIONS (3)
  - CONFUSIONAL STATE [None]
  - EXPIRED DRUG ADMINISTERED [None]
  - HYPERTENSION [None]
